FAERS Safety Report 4808969-8 (Version None)
Quarter: 2005Q4

REPORT INFORMATION
  Report Type: 
  Country: None (occurrence: None)
  Receive Date: 20051025
  Receipt Date: 20051014
  Transmission Date: 20060501
  Serious: Yes (Hospitalization)
  Sender: FDA-Public Use
  Company Number: FR-ROCHE-421305

PATIENT
  Age: 51 Year
  Sex: Male
  Weight: 90 kg

DRUGS (12)
  1. KYTRIL [Suspect]
     Route: 042
     Dates: start: 20050718, end: 20050718
  2. KYTRIL [Suspect]
     Dosage: PRE-MEDICATION
     Route: 042
     Dates: start: 20050913, end: 20050913
  3. SOLU-MEDROL [Suspect]
     Indication: DRUG USE FOR UNKNOWN INDICATION
     Dosage: FORMULATION REPORTED AS INJECTABLE SOLUTION
     Route: 042
     Dates: start: 20050718, end: 20050718
  4. FLUOROURACIL [Suspect]
     Route: 042
     Dates: start: 20050718, end: 20050719
  5. FLUOROURACIL [Suspect]
     Route: 042
     Dates: start: 20050913
  6. ELOXATIN [Suspect]
     Route: 042
     Dates: start: 20050718, end: 20050718
  7. CALCIUM FOLINATE [Suspect]
     Route: 042
     Dates: start: 20050718, end: 20050718
  8. CALCIUM FOLINATE [Suspect]
     Route: 042
     Dates: start: 20050913
  9. ONDANSETRON [Suspect]
     Indication: DRUG USE FOR UNKNOWN INDICATION
     Route: 042
     Dates: start: 20050718
  10. CAMPTOSAR [Concomitant]
     Dosage: TREATMENT WAS STOPPED AND THEN RESTARTED AT REDUCED RATE
     Dates: start: 20050913
  11. ATROPINE [Concomitant]
     Dosage: PRE-MEDICATION
     Dates: start: 20050913, end: 20050913
  12. MOTILYO [Concomitant]
     Dosage: DOSAGE REPORTED AS WHEN NEEDED
     Dates: start: 20050718

REACTIONS (7)
  - HAEMATURIA [None]
  - HAEMOGLOBIN DECREASED [None]
  - HYPERTENSION [None]
  - PURPURA [None]
  - TACHYCARDIA [None]
  - THROMBOCYTOPENIA [None]
  - WHITE BLOOD CELL COUNT DECREASED [None]
